FAERS Safety Report 8909696 (Version 2)
Quarter: 2012Q4

REPORT INFORMATION
  Report Type: 
  Country: DE (occurrence: US)
  Receive Date: 20121115
  Receipt Date: 20121206
  Transmission Date: 20130627
  Serious: Yes (Death, Hospitalization)
  Sender: FDA-Public Use
  Company Number: US-GENZYME-LEUK-1000260

PATIENT
  Age: 53 Year
  Sex: Male
  Weight: 99 kg

DRUGS (10)
  1. PROTONIX [Concomitant]
     Indication: PRODUCT USED FOR UNKNOWN INDICATION
     Dosage: UNK
     Route: 065
  2. LEUKINE [Suspect]
     Indication: MALIGNANT MELANOMA
     Dosage: 250 mcg/ml, UNK (days 1-14)
     Route: 058
     Dates: start: 20120111, end: 20120215
  3. MYCOPHENOLATE MOFETIL [Suspect]
     Indication: MALIGNANT MELANOMA
     Dosage: 10 mg/kg, UNK
     Route: 041
     Dates: start: 20120111, end: 20120202
  4. ADVIL [Concomitant]
     Indication: PRODUCT USED FOR UNKNOWN INDICATION
     Dosage: UNK
     Route: 065
  5. VICODIN [Concomitant]
     Indication: PRODUCT USED FOR UNKNOWN INDICATION
     Dosage: UNK
     Route: 065
  6. AVALOX [Concomitant]
     Indication: PRODUCT USED FOR UNKNOWN INDICATION
     Dosage: UNK
     Route: 065
  7. SODIUM BICARBONATE [Concomitant]
     Indication: PRODUCT USED FOR UNKNOWN INDICATION
     Dosage: UNK
     Route: 065
  8. BOOST [Concomitant]
     Indication: PRODUCT USED FOR UNKNOWN INDICATION
     Dosage: UNK
     Route: 065
  9. NYSTATIN [Concomitant]
     Indication: PRODUCT USED FOR UNKNOWN INDICATION
     Dosage: UNK
     Route: 065
  10. LACTULOSE [Concomitant]
     Indication: PRODUCT USED FOR UNKNOWN INDICATION
     Dosage: UNK
     Route: 065

REACTIONS (3)
  - Metastatic malignant melanoma [Fatal]
  - Hepatic function abnormal [Fatal]
  - Hepatorenal failure [Fatal]
